FAERS Safety Report 10151358 (Version 1)
Quarter: 2014Q2

REPORT INFORMATION
  Report Type: Spontaneous
  Country: US (occurrence: US)
  Receive Date: 20140502
  Receipt Date: 20140502
  Transmission Date: 20141212
  Serious: No
  Sender: FDA-Public Use
  Company Number: US-ASTRAZENECA-2013SE49960

PATIENT
  Sex: Female

DRUGS (8)
  1. PRILOSEC OTC [Suspect]
     Indication: GASTROOESOPHAGEAL REFLUX DISEASE
     Dosage: FOR 4 DAYS
     Route: 048
  2. PRILOSEC OTC [Suspect]
     Indication: DYSPNOEA
     Dosage: FOR 4 DAYS
     Route: 048
  3. PRILOSEC OTC [Suspect]
     Indication: FLATULENCE
     Dosage: FOR 4 DAYS
     Route: 048
  4. PRILOSEC OTC [Suspect]
     Indication: ABDOMINAL DISTENSION
     Dosage: FOR 4 DAYS
     Route: 048
  5. PRILOSEC OTC [Suspect]
     Indication: GASTROOESOPHAGEAL REFLUX DISEASE
  6. PRILOSEC OTC [Suspect]
     Indication: DYSPNOEA
  7. PRILOSEC OTC [Suspect]
     Indication: FLATULENCE
  8. PRILOSEC OTC [Suspect]
     Indication: ABDOMINAL DISTENSION

REACTIONS (5)
  - Abdominal distension [Not Recovered/Not Resolved]
  - Dyspnoea [Not Recovered/Not Resolved]
  - Eructation [Not Recovered/Not Resolved]
  - Abdominal distension [Not Recovered/Not Resolved]
  - Drug ineffective for unapproved indication [Unknown]
